FAERS Safety Report 23286792 (Version 1)
Quarter: 2023Q4

REPORT INFORMATION
  Report Type: Spontaneous
  Country: CH (occurrence: CH)
  Receive Date: 20231212
  Receipt Date: 20231212
  Transmission Date: 20240109
  Serious: Yes (Congenital Anomaly, Other)
  Sender: FDA-Public Use
  Company Number: None

PATIENT
  Age: 0 Year
  Sex: Male
  Weight: 3.555 kg

DRUGS (2)
  1. VIMPAT [Suspect]
     Active Substance: LACOSAMIDE
     Indication: Frontal lobe epilepsy
     Dosage: 150 MILLIGRAM, ONCE DAILY (QD)
     Route: 064
     Dates: end: 202302
  2. VIMPAT [Suspect]
     Active Substance: LACOSAMIDE
     Dosage: 50 MILLIGRAM, ONCE DAILY (QD)
     Route: 064
     Dates: start: 202302

REACTIONS (3)
  - Laryngomalacia [Not Recovered/Not Resolved]
  - Congenital laryngeal stridor [Not Recovered/Not Resolved]
  - Maternal exposure during pregnancy [Unknown]

NARRATIVE: CASE EVENT DATE: 20230201
